FAERS Safety Report 4579936-7 (Version None)
Quarter: 2005Q1

REPORT INFORMATION
  Report Type: 
  Country: None (occurrence: None)
  Receive Date: 20050214
  Receipt Date: 20050201
  Transmission Date: 20050727
  Serious: Yes (Life-Threatening)
  Sender: FDA-Public Use
  Company Number: JP-SOLVAY-00305000322

PATIENT
  Age: 20404 Day
  Sex: Male
  Weight: 57 kg

DRUGS (4)
  1. ASPIRIN [Concomitant]
     Indication: CEREBROVASCULAR DISORDER
     Dosage: DAILY DOSE: 100 MILLIGRAM(S)
     Route: 048
  2. LUVOX [Suspect]
     Indication: DEPRESSION
     Dosage: DAILY DOSE: 150 MILLIGRAM(S)
     Route: 048
     Dates: start: 20041215, end: 20050130
  3. OPALMON [Concomitant]
     Indication: SPONDYLOLYSIS
     Dosage: DAILY DOSE:  UNKNOWN
     Route: 048
  4. CYANOCOBALAMIN [Concomitant]
     Indication: DIABETIC NEUROPATHY
     Dosage: DAILY DOSE: 750 MILLIGRAM(S)
     Route: 048

REACTIONS (2)
  - EPIGLOTTITIS [None]
  - MUCOSAL EROSION [None]
